FAERS Safety Report 5748720-0 (Version None)
Quarter: 2008Q2

REPORT INFORMATION
  Report Type: 
  Country: None (occurrence: None)
  Receive Date: 20080521
  Receipt Date: 20080506
  Transmission Date: 20081010
  Serious: Yes (Other)
  Sender: FDA-Public Use
  Company Number: S08-FRA-01795-01

PATIENT
  Age: 56 Year
  Sex: Female

DRUGS (2)
  1. ESCITALOPRAM [Suspect]
     Dosage: 15 MG QD PO
     Route: 048
  2. LORAZEPAM [Concomitant]

REACTIONS (1)
  - TUNNEL VISION [None]
